FAERS Safety Report 7630873-0 (Version None)
Quarter: 2011Q3

REPORT INFORMATION
  Report Type: 
  Country: None (occurrence: None)
  Receive Date: 20110724
  Receipt Date: 20110714
  Transmission Date: 20111222
  Serious: Yes (Other)
  Sender: FDA-Public Use
  Company Number: US-AMGEN-USASP2011035860

PATIENT
  Age: 66 Year
  Sex: Male

DRUGS (1)
  1. ENBREL [Suspect]
     Indication: PSORIATIC ARTHROPATHY
     Dosage: 25 MG, QWK
     Dates: start: 20030410

REACTIONS (4)
  - EYE INFECTION STAPHYLOCOCCAL [None]
  - GLAUCOMA [None]
  - CONJUNCTIVAL BLEB [None]
  - EYE INFLAMMATION [None]
